FAERS Safety Report 5454616-4 (Version None)
Quarter: 2007Q3

REPORT INFORMATION
  Report Type: 
  Country: None (occurrence: None)
  Receive Date: 20070917
  Receipt Date: 20070912
  Transmission Date: 20080115
  Serious: Yes (Death)
  Sender: FDA-Public Use
  Company Number: HQWYE122212SEP07

PATIENT

DRUGS (1)
  1. AMIODARONE HCL [Suspect]
     Dosage: NOT PROVIDED
     Route: 042
     Dates: start: 20070101

REACTIONS (1)
  - DEATH [None]
